FAERS Safety Report 24045202 (Version 1)
Quarter: 2024Q3

REPORT INFORMATION
  Report Type: Spontaneous
  Country: CN (occurrence: CN)
  Receive Date: 20240703
  Receipt Date: 20240703
  Transmission Date: 20241017
  Serious: Yes (Hospitalization)
  Sender: BIOGEN
  Company Number: CN-BAT-2024BAT000468

PATIENT
  Age: 80 Year
  Sex: Female
  Weight: 60.0 kg

DRUGS (5)
  1. TOFIDENCE [Suspect]
     Active Substance: TOCILIZUMAB-BAVI
     Indication: Rheumatoid arthritis
     Dosage: 400.00 MG [ONE SINGLE DOSE]
     Route: 041
     Dates: start: 20240518, end: 20240518
  2. TOFIDENCE [Suspect]
     Active Substance: TOCILIZUMAB-BAVI
     Indication: Rheumatoid arthritis
     Dosage: 80.00 MG [ONE SINGLE DOSE]
     Route: 041
     Dates: start: 20240518, end: 20240518
  3. SODIUM CHLORIDE [Concomitant]
     Active Substance: SODIUM CHLORIDE
     Indication: Vehicle solution use
     Dosage: 100.00 ML [ONE SINGLE DOSE]
     Route: 041
     Dates: start: 20240518, end: 20240518
  4. SODIUM CHLORIDE [Concomitant]
     Active Substance: SODIUM CHLORIDE
     Indication: Vehicle solution use
     Dosage: 100.00 ML [ONE SINGLE DOSE]
     Route: 041
     Dates: start: 20240518, end: 20240518
  5. Iremod [Concomitant]
     Indication: Rheumatoid arthritis
     Route: 048
     Dates: start: 20240514, end: 20240621

REACTIONS (4)
  - Anaemia [Unknown]
  - White blood cell count decreased [Unknown]
  - Platelet count decreased [Unknown]
  - Neutrophil count decreased [Unknown]

NARRATIVE: CASE EVENT DATE: 20240618
